FAERS Safety Report 9510628 (Version 5)
Quarter: 2014Q2

REPORT INFORMATION
  Report Type: Report from Study
  Country: JP (occurrence: JP)
  Receive Date: 20130909
  Receipt Date: 20140625
  Transmission Date: 20141212
  Serious: Yes (Death, Disabling)
  Sender: FDA-Public Use
  Company Number: JP-009507513-1309JPN003475

PATIENT
  Age: 38 Year
  Sex: Female
  Weight: 53 kg

DRUGS (9)
  1. CANCIDAS FOR INTRAVENOUS DRIP INFUSION 70MG [Suspect]
     Indication: SYSTEMIC CANDIDA
     Dosage: 70 MG, QD
     Route: 041
     Dates: start: 20130815, end: 20130815
  2. CANCIDAS FOR INTRAVENOUS DRIP INFUSION 70MG [Suspect]
     Dosage: 35 MG, QD
     Route: 041
     Dates: start: 20130816, end: 20130816
  3. VANCOMYCIN HYDROCHLORIDE [Concomitant]
     Indication: SEPSIS
     Dosage: 0.75 G, QD, IV UNSPECIFIED
     Route: 042
     Dates: start: 20130803, end: 20130817
  4. VIRUHEXAL [Concomitant]
     Indication: ANTIVIRAL PROPHYLAXIS
     Dosage: 250 G, QD, DIVIDED DOSE FREQUENCY UNKNOWN.
     Route: 042
     Dates: start: 20130807, end: 20130819
  5. PROGRAF [Concomitant]
     Indication: PROPHYLAXIS AGAINST GRAFT VERSUS HOST DISEASE
     Dosage: BLOOD DRUG CONCENTRATION 10-15MG/ML, DAILY DOSE UNKNOWN, IV UNSPECIFIED
     Route: 042
     Dates: start: 20130617, end: 20130820
  6. PROGRAF [Concomitant]
     Dosage: 2 MG, QD
     Route: 051
     Dates: start: 20130815
  7. VORICONAZOLE [Concomitant]
     Dosage: DAILY DOSAGE UNKNOWN
     Route: 065
  8. URSO [Concomitant]
     Indication: VENOOCCLUSIVE LIVER DISEASE
     Dosage: 200 MG, TID
     Route: 048
     Dates: start: 20130815
  9. MICAFUNGIN SODIUM [Concomitant]
     Indication: SYSTEMIC CANDIDA
     Dosage: 50 MG DIVIDED DOSE FREQUENCY UNKNOWN
     Route: 041
     Dates: start: 20130731, end: 20130814

REACTIONS (3)
  - Renal impairment [Fatal]
  - Hepatic enzyme increased [Not Recovered/Not Resolved]
  - Pulmonary mycosis [Fatal]
